FAERS Safety Report 25832039 (Version 1)
Quarter: 2025Q3

REPORT INFORMATION
  Report Type: Report from Study
  Country: US (occurrence: US)
  Receive Date: 20250922
  Receipt Date: 20250922
  Transmission Date: 20251021
  Serious: No
  Sender: SANDOZ
  Company Number: US-SANDOZ-SDZ2025US067526

PATIENT
  Age: 3 Year
  Sex: Male

DRUGS (4)
  1. OMNITROPE [Suspect]
     Active Substance: SOMATROPIN
     Indication: Short stature
     Dosage: 10 MG, QD, 10MG/1.5ML
     Route: 058
     Dates: start: 20231017
  2. OMNITROPE [Suspect]
     Active Substance: SOMATROPIN
     Indication: Short stature
     Dosage: 10 MG, QD, 10MG/1.5ML
     Route: 058
     Dates: start: 20231017
  3. OMNITROPE [Suspect]
     Active Substance: SOMATROPIN
     Indication: Prader-Willi syndrome
  4. OMNITROPE [Suspect]
     Active Substance: SOMATROPIN
     Indication: Prader-Willi syndrome

REACTIONS (2)
  - Incorrect dose administered by device [Unknown]
  - Device mechanical issue [Unknown]

NARRATIVE: CASE EVENT DATE: 20250915
